FAERS Safety Report 19383526 (Version 2)
Quarter: 2021Q4

REPORT INFORMATION
  Report Type: Spontaneous
  Country: GB (occurrence: GB)
  Receive Date: 20210608
  Receipt Date: 20211221
  Transmission Date: 20220304
  Serious: Yes (Other)
  Sender: FDA-Public Use
  Company Number: GB-ROCHE-2317950

PATIENT
  Age: 58 Year
  Sex: Female

DRUGS (16)
  1. DOCETAXEL [Suspect]
     Active Substance: DOCETAXEL
     Dosage: 148 MG, Q3W
     Route: 042
     Dates: start: 20161114, end: 20161114
  2. DOCETAXEL [Suspect]
     Active Substance: DOCETAXEL
     Dosage: 88 MG, Q3W
     Route: 042
     Dates: start: 20170126, end: 20180216
  3. DOCETAXEL [Suspect]
     Active Substance: DOCETAXEL
     Dosage: 108 MG, Q3W
     Route: 042
     Dates: start: 20161206, end: 20170126
  4. CAPECITABINE [Suspect]
     Active Substance: CAPECITABINE
     Indication: HER2 positive breast cancer
     Dosage: 2500 MG, BID
     Route: 048
     Dates: start: 20180405, end: 20180405
  5. CAPECITABINE [Suspect]
     Active Substance: CAPECITABINE
     Dosage: 1950 MG, BID
     Route: 048
     Dates: start: 20180426, end: 20190709
  6. CAPECITABINE [Suspect]
     Active Substance: CAPECITABINE
     Dosage: 1800 MG, BID
     Route: 048
     Dates: start: 20190730, end: 20200728
  7. PACLITAXEL [Suspect]
     Active Substance: PACLITAXEL
     Indication: HER2 positive breast cancer
     Dosage: 162 MG, QW
     Route: 042
     Dates: start: 20210326
  8. TRASTUZUMAB [Suspect]
     Active Substance: TRASTUZUMAB
     Indication: HER2 positive breast cancer
     Dosage: 714 MG, Q3W LOADING DOSE, FIRST CYCLE
     Route: 042
     Dates: start: 20161115, end: 20161115
  9. TRASTUZUMAB [Suspect]
     Active Substance: TRASTUZUMAB
     Dosage: 525 MG, Q3W
     Route: 042
     Dates: start: 20161206, end: 20180208
  10. TRASTUZUMAB [Suspect]
     Active Substance: TRASTUZUMAB
     Dosage: 600 MG, Q3W
     Route: 058
     Dates: start: 20180405
  11. PERTUZUMAB [Suspect]
     Active Substance: PERTUZUMAB
     Indication: HER2 positive breast cancer
     Dosage: 840 MG, Q3W LOADING DOSE FIRST CYCLE
     Route: 042
     Dates: start: 20161115, end: 20161115
  12. PERTUZUMAB [Suspect]
     Active Substance: PERTUZUMAB
     Dosage: 420 MG, Q3W
     Route: 042
     Dates: start: 20161206, end: 20180208
  13. ADO-TRASTUZUMAB EMTANSINE [Suspect]
     Active Substance: ADO-TRASTUZUMAB EMTANSINE
     Indication: HER2 positive breast cancer
     Dosage: 320 MG, Q3W
     Route: 042
     Dates: start: 20200824
  14. COVID-19 VACCINE NOS [Concomitant]
     Active Substance: COVID-19 VACCINE NOS
     Indication: Immunisation
     Dosage: 0.3 ML
     Route: 030
     Dates: start: 20210203, end: 20210203
  15. COVID-19 VACCINE NOS [Concomitant]
     Active Substance: COVID-19 VACCINE NOS
     Dosage: 0.3 ML
     Route: 030
     Dates: start: 20210415
  16. LISINOPRIL [Concomitant]
     Active Substance: LISINOPRIL
     Indication: Hypertension
     Dosage: 2.5 MG, QD
     Route: 048
     Dates: start: 20200928

REACTIONS (4)
  - Lower respiratory tract infection [Recovered/Resolved]
  - Urinary tract infection [Recovered/Resolved]
  - Vulvovaginal candidiasis [Recovered/Resolved]
  - Upper respiratory tract infection [Recovered/Resolved]

NARRATIVE: CASE EVENT DATE: 20190416
